FAERS Safety Report 9379336 (Version 2)
Quarter: 2013Q3

REPORT INFORMATION
  Report Type: Spontaneous
  Country: US (occurrence: US)
  Receive Date: 20130702
  Receipt Date: 20130814
  Transmission Date: 20140515
  Serious: Yes (Other)
  Sender: FDA-Public Use
  Company Number: US-ROXANE LABORATORIES, INC.-2013-RO-01067RO

PATIENT
  Age: 57 Year
  Sex: Female

DRUGS (3)
  1. BUPRENORPHINE HYDROCHLORIDE [Suspect]
     Indication: NERVE INJURY
     Dosage: 8 MG
     Route: 048
     Dates: start: 20130207, end: 20130207
  2. BUPRENORPHINE HYDROCHLORIDE [Suspect]
     Dosage: 16 MG
     Route: 048
     Dates: start: 20130208, end: 20130208
  3. BUPRENORPHINE HYDROCHLORIDE [Suspect]
     Route: 048
     Dates: start: 201303, end: 201303

REACTIONS (8)
  - Convulsion [Recovered/Resolved]
  - Sensory disturbance [Recovered/Resolved]
  - Anxiety [Recovered/Resolved]
  - Confusional state [Not Recovered/Not Resolved]
  - Dry eye [Recovered/Resolved]
  - Speech disorder [Recovered/Resolved]
  - Nausea [Recovered/Resolved]
  - Product quality issue [Unknown]
